FAERS Safety Report 4985037-6 (Version None)
Quarter: 2006Q1

REPORT INFORMATION
  Report Type: 
  Country: None (occurrence: None)
  Receive Date: 20060309
  Receipt Date: 20050914
  Transmission Date: 20060701
  Serious: Yes (Other)
  Sender: FDA-Public Use
  Company Number: 417640

PATIENT

DRUGS (3)
  1. ACCUTANE [Suspect]
     Indication: ACNE CYSTIC
     Dates: start: 20040325, end: 20040525
  2. BIRTH CONTROL PILLS 365 DAYS (ORAL CONTRACEPTIVE NOS) [Concomitant]
  3. CONTRACEPTIVE (CONTRACEPTIVE NOS) [Concomitant]

REACTIONS (1)
  - PREGNANCY [None]
